FAERS Safety Report 6524194-7 (Version None)
Quarter: 2009Q4

REPORT INFORMATION
  Report Type: 
  Country: None (occurrence: None)
  Receive Date: 20091230
  Receipt Date: 20091230
  Transmission Date: 20100525
  Serious: No
  Sender: FDA-Public Use
  Company Number: None

PATIENT
  Age: 26 Year
  Sex: Male
  Weight: 81.6475 kg

DRUGS (1)
  1. COLD REMEDY RAPID MELTS WITH VITAMIN C [Suspect]
     Dosage: Q 3 HOURS - 1 DAY
     Dates: start: 20091207, end: 20091208

REACTIONS (1)
  - DYSGEUSIA [None]
